FAERS Safety Report 11549791 (Version 4)
Quarter: 2016Q4

REPORT INFORMATION
  Report Type: Spontaneous
  Country: US (occurrence: US)
  Receive Date: 20150924
  Receipt Date: 20161109
  Transmission Date: 20170206
  Serious: No
  Sender: FDA-Public Use
  Company Number: US-INCYTE CORPORATION-2015IN003282

PATIENT
  Age: 75 Year
  Sex: Female
  Weight: 57.14 kg

DRUGS (7)
  1. HYDREA [Concomitant]
     Active Substance: HYDROXYUREA
     Dosage: 1000 MG, QD
  2. JAKAFI [Suspect]
     Active Substance: RUXOLITINIB
     Dosage: 10 MG, BID
     Route: 048
     Dates: start: 201502
  3. JAKAFI [Suspect]
     Active Substance: RUXOLITINIB
     Dosage: 10 MG, BID
     Dates: start: 20150209
  4. FERROUS SULFATE. [Concomitant]
     Active Substance: FERROUS SULFATE
     Dosage: 325 MG, BID
     Route: 048
  5. JAKAFI [Suspect]
     Active Substance: RUXOLITINIB
     Indication: ESSENTIAL THROMBOCYTHAEMIA
     Dosage: 10 MG, BID
     Route: 048
     Dates: start: 20150128
  6. SOTALOL. [Concomitant]
     Active Substance: SOTALOL
     Dosage: 120 MG, BID
     Route: 048
  7. XARELTO [Concomitant]
     Active Substance: RIVAROXABAN
     Dosage: 20 MG, QD
     Route: 048

REACTIONS (11)
  - Eye pruritus [Unknown]
  - Off label use [Unknown]
  - Mucosal inflammation [Unknown]
  - Ocular hyperaemia [Unknown]
  - Visual impairment [Unknown]
  - Asthenia [Unknown]
  - Eye pain [Unknown]
  - Eye irritation [Unknown]
  - Fatigue [Unknown]
  - Scab [Unknown]
  - Fatigue [Not Recovered/Not Resolved]

NARRATIVE: CASE EVENT DATE: 20150506
